FAERS Safety Report 10712923 (Version 1)
Quarter: 2015Q1

REPORT INFORMATION
  Report Type: Spontaneous
  Country: US (occurrence: US)
  Receive Date: 20150115
  Receipt Date: 20150115
  Transmission Date: 20150721
  Serious: No
  Sender: FDA-Public Use
  Company Number: US-ASTRAZENECA-2014SE97650

PATIENT
  Age: 74 Year
  Sex: Female
  Weight: 73.9 kg

DRUGS (4)
  1. SYMBICORT [Suspect]
     Active Substance: BUDESONIDE\FORMOTEROL FUMARATE DIHYDRATE
     Indication: ASTHMA
     Dosage: UNKNOWN
     Route: 055
     Dates: start: 20141114, end: 20141216
  2. FLORADIL [Concomitant]
     Indication: ASTHMA
     Route: 055
  3. PULMICORT FLEXHALER [Suspect]
     Active Substance: BUDESONIDE
     Indication: ASTHMA
     Route: 055
  4. PULMICORT FLEXHALER [Suspect]
     Active Substance: BUDESONIDE
     Indication: ASTHMA
     Route: 055

REACTIONS (5)
  - Eye disorder [Unknown]
  - Ear pain [Unknown]
  - Adverse event [Unknown]
  - Dyspnoea [Unknown]
  - Headache [Unknown]
